FAERS Safety Report 10988957 (Version 1)
Quarter: 2015Q2

REPORT INFORMATION
  Report Type: Spontaneous
  Country: US (occurrence: US)
  Receive Date: 20150405
  Receipt Date: 20150405
  Transmission Date: 20150821
  Serious: Yes (Other)
  Sender: FDA-Public Use
  Company Number: US-ACTAVIS-2015-06773

PATIENT

DRUGS (1)
  1. LEVETIRACETAM ER (ACTAVIS LABORATORIES FL) [Suspect]
     Active Substance: LEVETIRACETAM
     Indication: SEIZURE
     Dosage: 500 MG, QHS
     Route: 065

REACTIONS (14)
  - Dehydration [Unknown]
  - Muscle disorder [Unknown]
  - Pollakiuria [Unknown]
  - Tooth disorder [Unknown]
  - Insomnia [Unknown]
  - Muscle atrophy [Unknown]
  - Headache [Unknown]
  - Nocturia [Unknown]
  - Asthenia [Unknown]
  - Central nervous system stimulation [Unknown]
  - Palpitations [Unknown]
  - Paraesthesia [Unknown]
  - Tooth discolouration [Unknown]
  - Skin haemorrhage [Unknown]
